FAERS Safety Report 14033220 (Version 1)
Quarter: 2017Q4

REPORT INFORMATION
  Report Type: Spontaneous
  Country: US (occurrence: US)
  Receive Date: 20171002
  Receipt Date: 20171002
  Transmission Date: 20180321
  Serious: No
  Sender: FDA-Public Use
  Company Number: US-GALDERMA-US17005952

PATIENT
  Sex: Female

DRUGS (10)
  1. RESTYLANE DEFYNE [Concomitant]
     Dates: start: 20170421
  2. LATISSE [Concomitant]
     Active Substance: BIMATOPROST
  3. COZAAR [Concomitant]
     Active Substance: LOSARTAN POTASSIUM
  4. SYNTHROID [Concomitant]
     Active Substance: LEVOTHYROXINE SODIUM
  5. PREDNISONE. [Concomitant]
     Active Substance: PREDNISONE
  6. CLOBETASOL PROPIONATE (CLOBETASOL PROPIONATE) [Suspect]
     Active Substance: CLOBETASOL PROPIONATE
     Indication: PRODUCT USED FOR UNKNOWN INDICATION
  7. VAGIFEM [Concomitant]
     Active Substance: ESTRADIOL
  8. ATIVAN [Concomitant]
     Active Substance: LORAZEPAM
  9. KEFLEX [Concomitant]
     Active Substance: CEPHALEXIN
  10. ALDARA [Concomitant]
     Active Substance: IMIQUIMOD

REACTIONS (3)
  - Pain of skin [Recovering/Resolving]
  - Erythema [Recovering/Resolving]
  - Skin swelling [Recovering/Resolving]

NARRATIVE: CASE EVENT DATE: 20170701
